FAERS Safety Report 16134573 (Version 1)
Quarter: 2019Q1

REPORT INFORMATION
  Report Type: Spontaneous
  Country: US (occurrence: US)
  Receive Date: 20190329
  Receipt Date: 20190329
  Transmission Date: 20190418
  Serious: No
  Sender: FDA-Public Use
  Company Number: US-TEVA-2019-US-1020047

PATIENT
  Sex: Female

DRUGS (2)
  1. HYDROCORTISONE CREAM [Suspect]
     Active Substance: HYDROCORTISONE
     Indication: SKIN IRRITATION
     Route: 061
  2. ALOE [Suspect]
     Active Substance: ALOE
     Indication: SKIN IRRITATION
     Route: 065

REACTIONS (2)
  - Pruritus [Unknown]
  - Alopecia [Unknown]
